FAERS Safety Report 4613224-5 (Version None)
Quarter: 2005Q1

REPORT INFORMATION
  Report Type: 
  Country: None (occurrence: None)
  Receive Date: 20050315
  Receipt Date: 20050224
  Transmission Date: 20050727
  Serious: Yes (Hospitalization, Other)
  Sender: FDA-Public Use
  Company Number: FR_050105558

PATIENT
  Age: 65 Year
  Sex: Female

DRUGS (5)
  1. EVISTA [Suspect]
     Indication: OSTEOPOROSIS
     Dosage: 60 MG/1 DAY
     Dates: start: 20030218, end: 20030201
  2. RALOXIFENE HCL [Suspect]
     Indication: OSTEOPOROSIS
     Dosage: 60 MG/1 DAY
     Dates: start: 20030201, end: 20041101
  3. FENOFIBRATE [Concomitant]
  4. GAVISCON [Concomitant]
  5. ART 50 (DIACEREIN) [Concomitant]

REACTIONS (4)
  - ANGIOMYOLIPOMA [None]
  - BREAST CANCER [None]
  - HEPATIC STEATOSIS [None]
  - RENAL MASS [None]
